FAERS Safety Report 12603526 (Version 1)
Quarter: 2016Q3

REPORT INFORMATION
  Report Type: Spontaneous
  Country: US (occurrence: US)
  Receive Date: 20160728
  Receipt Date: 20160728
  Transmission Date: 20161109
  Serious: Yes (Other)
  Sender: FDA-Public Use
  Company Number: US-BAYER-2016-146148

PATIENT
  Age: 25 Year
  Sex: Female

DRUGS (1)
  1. MIRENA [Suspect]
     Active Substance: LEVONORGESTREL
     Dosage: 20 MCG/24HR, CONT
     Route: 015
     Dates: start: 20130404, end: 20160406

REACTIONS (12)
  - Benign intracranial hypertension [None]
  - Tinnitus [None]
  - Nausea [None]
  - Neck pain [None]
  - Weight increased [None]
  - Headache [None]
  - Dizziness [None]
  - Vision blurred [None]
  - Amnesia [None]
  - Back pain [None]
  - Loss of consciousness [None]
  - Musculoskeletal pain [None]

NARRATIVE: CASE EVENT DATE: 2013
